FAERS Safety Report 4840388-0 (Version None)
Quarter: 2005Q4

REPORT INFORMATION
  Report Type: 
  Country: None (occurrence: None)
  Receive Date: 20051019
  Receipt Date: 20040825
  Transmission Date: 20060501
  Serious: Yes (Death)
  Sender: FDA-Public Use
  Company Number: DSA_70389_2004

PATIENT
  Age: 58 Year
  Sex: Female

DRUGS (3)
  1. DARVOCET-N 100 [Suspect]
  2. DARVOCET-N 100 [Suspect]
     Indication: BACK PAIN
     Dosage: 2 TAB Q6GR PO
     Route: 048
  3. PAXIL [Suspect]
     Indication: DEPRESSION

REACTIONS (2)
  - COMPLETED SUICIDE [None]
  - OVERDOSE [None]
